FAERS Safety Report 5166962-2 (Version None)
Quarter: 2006Q4

REPORT INFORMATION
  Report Type: 
  Country: None (occurrence: None)
  Receive Date: 20061122
  Receipt Date: 20061116
  Transmission Date: 20070319
  Serious: Yes (Life-Threatening, Hospitalization, Other)
  Sender: FDA-Public Use
  Company Number: 2006142738

PATIENT
  Age: 64 Year
  Sex: Male

DRUGS (8)
  1. LYRICA [Suspect]
     Indication: DIABETIC NEUROPATHY
     Dosage: 150 MG (75 MG, 2 IN 1 D), ORAL
     Route: 048
  2. ADALAT OROS (NIFEDIPINE) [Concomitant]
  3. OXAZEPAM [Concomitant]
  4. NEXIUM [Concomitant]
  5. MOBIC [Concomitant]
  6. SAROTEX (AMITRIPTYLINE HYDROCHLORIDE) [Concomitant]
  7. ESUCOS (DIXYRAZINE) [Concomitant]
  8. ASASANTIN (ACETYLSALICYLIC ACID) [Concomitant]

REACTIONS (1)
  - CARDIAC FAILURE [None]
